FAERS Safety Report 9123558 (Version 1)
Quarter: 2013Q1

REPORT INFORMATION
  Report Type: Spontaneous
  Country: US (occurrence: None)
  Receive Date: 20130131
  Receipt Date: 20130131
  Transmission Date: 20140127
  Serious: Yes (Other)
  Sender: FDA-Public Use
  Company Number: 001470757A

PATIENT
  Sex: Male

DRUGS (1)
  1. XOUT WASH IN TREATMENT [Suspect]
     Indication: ACNE
     Dosage: ONCE DAILY DERMAL
     Route: 061
     Dates: start: 20121120, end: 20121124

REACTIONS (2)
  - Urticaria [None]
  - Hypersensitivity [None]
